FAERS Safety Report 25255410 (Version 1)
Quarter: 2025Q2

REPORT INFORMATION
  Report Type: Spontaneous
  Country: FR (occurrence: FR)
  Receive Date: 20250430
  Receipt Date: 20250430
  Transmission Date: 20250716
  Serious: Yes (Hospitalization, Other)
  Sender: AUROBINDO
  Company Number: FR-AFSSAPS-DJ2025000486

PATIENT
  Age: 58 Year
  Sex: Female
  Weight: 54 kg

DRUGS (6)
  1. DOXORUBICIN [Suspect]
     Active Substance: DOXORUBICIN
     Indication: Hodgkin^s disease
     Route: 042
     Dates: start: 20250128
  2. FEBUXOSTAT [Suspect]
     Active Substance: FEBUXOSTAT
     Indication: Tumour lysis syndrome
     Dosage: 80 MILLIGRAM, ONCE A DAY
     Route: 048
     Dates: start: 20250115, end: 202502
  3. BACTRIM [Suspect]
     Active Substance: SULFAMETHOXAZOLE\TRIMETHOPRIM
     Indication: Infection prophylaxis
     Dosage: 1 DOSAGE FORM, EVERY WEEK
     Route: 048
     Dates: start: 20250117, end: 202502
  4. DACARBAZINE [Suspect]
     Active Substance: DACARBAZINE
     Indication: Hodgkin^s disease
     Route: 042
     Dates: start: 20250128
  5. OPDIVO [Suspect]
     Active Substance: NIVOLUMAB
     Indication: Hodgkin^s disease
     Route: 042
     Dates: start: 20250128
  6. VINBLASTINE SULFATE [Suspect]
     Active Substance: VINBLASTINE SULFATE
     Indication: Hodgkin^s disease
     Route: 042
     Dates: start: 20250128

REACTIONS (3)
  - Dermatitis exfoliative generalised [Recovering/Resolving]
  - Colitis [Not Recovered/Not Resolved]
  - Enanthema [Not Recovered/Not Resolved]

NARRATIVE: CASE EVENT DATE: 20250202
